FAERS Safety Report 4729276-8 (Version None)
Quarter: 2005Q3

REPORT INFORMATION
  Report Type: 
  Country: None (occurrence: None)
  Receive Date: 20050729
  Receipt Date: 20040831
  Transmission Date: 20060218
  Serious: No
  Sender: FDA-Public Use
  Company Number: US-GLAXOSMITHKLINE-A0524052A

PATIENT
  Age: 40 Year
  Sex: Female

DRUGS (3)
  1. IMITREX [Suspect]
     Indication: MIGRAINE
     Dosage: 50MG AS REQUIRED
     Route: 048
     Dates: start: 19990101, end: 20040201
  2. PHENERGAN SUPPOSITORY [Concomitant]
  3. ORAL CONTRACEPTIVES [Concomitant]

REACTIONS (2)
  - DISORIENTATION [None]
  - HEART RATE INCREASED [None]
